FAERS Safety Report 15102068 (Version 5)
Quarter: 2018Q4

REPORT INFORMATION
  Report Type: Spontaneous
  Country: US (occurrence: US)
  Receive Date: 20180703
  Receipt Date: 20181011
  Transmission Date: 20190204
  Serious: Yes (Other)
  Sender: FDA-Public Use
  Company Number: US-SA-2018SA175920

PATIENT
  Age: 56 Year
  Sex: Male

DRUGS (1)
  1. DUPIXENT [Suspect]
     Active Substance: DUPILUMAB
     Indication: DERMATITIS ATOPIC
     Dosage: 300 MG, QOW
     Route: 058
     Dates: start: 20180214

REACTIONS (4)
  - Vision blurred [Unknown]
  - Eye colour change [Unknown]
  - Skin papilloma [Unknown]
  - Eczema [Unknown]

NARRATIVE: CASE EVENT DATE: 20180401
